FAERS Safety Report 5517844-5 (Version None)
Quarter: 2007Q4

REPORT INFORMATION
  Report Type: 
  Country: None (occurrence: None)
  Receive Date: 20071113
  Receipt Date: 20071105
  Transmission Date: 20080405
  Serious: Yes (Death, Hospitalization)
  Sender: FDA-Public Use
  Company Number: S07-USA-05698-01

PATIENT
  Age: 18 Year
  Sex: Male
  Weight: 90.7194 kg

DRUGS (2)
  1. CELEXA [Suspect]
     Indication: ANXIETY
  2. CELEXA [Suspect]
     Indication: DEPRESSION

REACTIONS (2)
  - AGGRESSION [None]
  - GUN SHOT WOUND [None]
